FAERS Safety Report 20087091 (Version 1)
Quarter: 2021Q4

REPORT INFORMATION
  Report Type: Spontaneous
  Country: US (occurrence: US)
  Receive Date: 20211118
  Receipt Date: 20211118
  Transmission Date: 20220303
  Serious: Yes (Hospitalization)
  Sender: FDA-Public Use
  Company Number: US-TEVA-2021-US-1977049

PATIENT
  Age: 70 Year
  Sex: Female
  Weight: 69.4 kg

DRUGS (7)
  1. ALBUTEROL SULFATE [Suspect]
     Active Substance: ALBUTEROL SULFATE
     Indication: Cough
     Dosage: 2 PUFFS EVERY 4-6 HOURS
     Route: 065
  2. ALBUTEROL SULFATE [Suspect]
     Active Substance: ALBUTEROL SULFATE
     Indication: Wheezing
  3. LAMOTRIGINE [Concomitant]
     Active Substance: LAMOTRIGINE
  4. ELIQUIS [Concomitant]
     Active Substance: APIXABAN
  5. LORAZEPAM [Concomitant]
     Active Substance: LORAZEPAM
  6. ATORVASTATIN [Concomitant]
     Active Substance: ATORVASTATIN
  7. BISOPROLOL [Concomitant]
     Active Substance: BISOPROLOL

REACTIONS (2)
  - Dyspnoea [Unknown]
  - Product dose omission issue [Unknown]
